FAERS Safety Report 7691321-8 (Version None)
Quarter: 2011Q3

REPORT INFORMATION
  Report Type: 
  Country: None (occurrence: None)
  Receive Date: 20110818
  Receipt Date: 20110809
  Transmission Date: 20111222
  Serious: Yes (Hospitalization, Other)
  Sender: FDA-Public Use
  Company Number: US-JNJFOC-20110400956

PATIENT
  Sex: Female
  Weight: 79.9 kg

DRUGS (6)
  1. REMICADE [Suspect]
     Route: 042
     Dates: start: 20100708
  2. CORTICOSTEROIDS [Concomitant]
  3. REMICADE [Suspect]
     Route: 042
     Dates: start: 20090914
  4. REMICADE [Suspect]
     Indication: CROHN'S DISEASE
     Route: 042
     Dates: start: 20100401
  5. REMICADE [Suspect]
     Route: 042
     Dates: start: 20100520
  6. MESALAMINE [Concomitant]
     Route: 048

REACTIONS (2)
  - SUBCUTANEOUS ABSCESS [None]
  - TINEA CAPITIS [None]
